FAERS Safety Report 23369202 (Version 1)
Quarter: 2024Q1

REPORT INFORMATION
  Report Type: Spontaneous
  Country: IN (occurrence: IN)
  Receive Date: 20240105
  Receipt Date: 20240105
  Transmission Date: 20240410
  Serious: Yes (Other)
  Sender: FDA-Public Use
  Company Number: None

PATIENT
  Age: 4 Decade
  Sex: Male

DRUGS (8)
  1. PREDNISOLONE [Suspect]
     Active Substance: PREDNISOLONE
     Indication: Immune system disorder
     Dosage: RECEIVED AT A DOSE OF 10-40MG PER DAY FOR 3 MONTHS AND SELF-ADMINISTERING INTERMITTENTLY FOR ALMOST
     Route: 065
  2. PREDNISOLONE [Suspect]
     Active Substance: PREDNISOLONE
     Indication: Leprosy
  3. HYDROCORTISONE [Interacting]
     Active Substance: HYDROCORTISONE
     Indication: Leprosy
     Dosage: 5 MILLIGRAM (AT 0800H)
     Route: 065
  4. HYDROCORTISONE [Interacting]
     Active Substance: HYDROCORTISONE
     Indication: Immune system disorder
     Dosage: 2.5 MILLIGRAM (AT 1230H)
     Route: 065
  5. HYDROCORTISONE [Interacting]
     Active Substance: HYDROCORTISONE
     Dosage: 2.5 MILLIGRAM (AT 1630H)
     Route: 065
  6. ITRACONAZOLE [Interacting]
     Active Substance: ITRACONAZOLE
     Indication: Cutaneous sporotrichosis
     Dosage: 200 MILLIGRAM, BID (CAPSULE)
     Route: 065
  7. ITRACONAZOLE [Interacting]
     Active Substance: ITRACONAZOLE
     Dosage: 200 MILLIGRAM, QD (DOSE FREQUENCY REDUCED) (CAPSULE)
     Route: 065
  8. ITRACONAZOLE [Interacting]
     Active Substance: ITRACONAZOLE
     Dosage: 200 MILLIGRAM, BID (AGAIN STARTED) (CAPSULE)
     Route: 065

REACTIONS (6)
  - Secondary adrenocortical insufficiency [Recovered/Resolved]
  - Cushing^s syndrome [Recovered/Resolved]
  - Adrenal insufficiency [Recovered/Resolved]
  - Drug interaction [Unknown]
  - Intentional product misuse [Unknown]
  - Off label use [Unknown]
